FAERS Safety Report 7968556-X (Version None)
Quarter: 2011Q4

REPORT INFORMATION
  Report Type: 
  Country: None (occurrence: None)
  Receive Date: 20111209
  Receipt Date: 20111129
  Transmission Date: 20120403
  Serious: Yes (Disabling, Other)
  Sender: FDA-Public Use
  Company Number: US-MERCK-1103USA03602

PATIENT
  Age: 23 Year
  Sex: Male
  Weight: 82 kg

DRUGS (2)
  1. PROPECIA [Suspect]
     Indication: ALOPECIA
     Route: 048
     Dates: start: 19980101
  2. PROSCAR [Suspect]
     Indication: ALOPECIA
     Route: 048
     Dates: start: 20080101

REACTIONS (33)
  - INTERVERTEBRAL DISC PROTRUSION [None]
  - CONSTRICTED AFFECT [None]
  - NON-CARDIAC CHEST PAIN [None]
  - NODULE [None]
  - HYPERSENSITIVITY [None]
  - BLOOD TESTOSTERONE DECREASED [None]
  - BLEPHARITIS [None]
  - PRURITUS [None]
  - CONTUSION [None]
  - ANHEDONIA [None]
  - DYSPHAGIA [None]
  - EYE DISORDER [None]
  - DEPRESSION [None]
  - ANIMAL BITE [None]
  - SEXUAL DYSFUNCTION [None]
  - ANXIETY [None]
  - PATELLOFEMORAL PAIN SYNDROME [None]
  - OCULAR HYPERAEMIA [None]
  - MELANOCYTIC NAEVUS [None]
  - LIBIDO DECREASED [None]
  - BURNING MOUTH SYNDROME [None]
  - BACK PAIN [None]
  - WEIGHT DECREASED [None]
  - PILONIDAL CYST [None]
  - ARRHYTHMIA [None]
  - MEMORY IMPAIRMENT [None]
  - WEIGHT INCREASED [None]
  - CROHN'S DISEASE [None]
  - EOSINOPHIL COUNT INCREASED [None]
  - LIVER FUNCTION TEST ABNORMAL [None]
  - INTENTIONAL DRUG MISUSE [None]
  - SPINAL CORD INJURY [None]
  - FULL BLOOD COUNT DECREASED [None]
